FAERS Safety Report 9391181 (Version 1)
Quarter: 2013Q3

REPORT INFORMATION
  Report Type: Report from Study
  Country: RU (occurrence: RU)
  Receive Date: 20130709
  Receipt Date: 20130709
  Transmission Date: 20140515
  Serious: No
  Sender: FDA-Public Use
  Company Number: PHHY2013RU072130

PATIENT
  Age: 61 Year
  Sex: Male

DRUGS (2)
  1. NO TREATMENT RECEIVED [Suspect]
  2. TASIGNA [Suspect]
     Dosage: 400 MG, UNK
     Dates: start: 20130114

REACTIONS (2)
  - Electrocardiogram QT prolonged [Recovered/Resolved]
  - Pain in extremity [Unknown]
